FAERS Safety Report 6981392-6 (Version None)
Quarter: 2010Q3

REPORT INFORMATION
  Report Type: 
  Country: None (occurrence: None)
  Receive Date: 20100909
  Receipt Date: 20100818
  Transmission Date: 20110219
  Serious: Yes (Hospitalization)
  Sender: FDA-Public Use
  Company Number: 10-0608

PATIENT
  Age: 58 Year
  Sex: Female
  Weight: 63.05 kg

DRUGS (3)
  1. AZO STANDARD MAXIMUM STRENGTH - 97.5 MG [Suspect]
     Indication: URINARY TRACT INFECTION
     Dosage: 2 TABLETS PER DAY, ORAL
     Route: 048
     Dates: start: 20100801, end: 20100811
  2. UNKNOWN PRESCRIPTION MEDICATION FOR HIGH BLOOD PRESSURE [Concomitant]
  3. OXYCODONE [Concomitant]

REACTIONS (2)
  - KIDNEY INFECTION [None]
  - RENAL IMPAIRMENT [None]
